FAERS Safety Report 18990670 (Version 5)
Quarter: 2025Q4

REPORT INFORMATION
  Report Type: Report from Study
  Country: US (occurrence: US)
  Receive Date: 20210310
  Receipt Date: 20251224
  Transmission Date: 20260117
  Serious: Yes (Other)
  Sender: NOVARTIS
  Company Number: NVSC2021US054425

PATIENT
  Age: 66 Year
  Sex: Female

DRUGS (1)
  1. COSENTYX [Suspect]
     Active Substance: SECUKINUMAB
     Indication: Product used for unknown indication
     Dosage: 300 MG, UNKNOWN
     Route: 065

REACTIONS (6)
  - Psoriatic arthropathy [Unknown]
  - Condition aggravated [Unknown]
  - Pain [Unknown]
  - Peripheral swelling [Unknown]
  - Product dose omission issue [Unknown]
  - Inflammation [Unknown]

NARRATIVE: CASE EVENT DATE: 20210308
